FAERS Safety Report 9604094 (Version 1)
Quarter: 2013Q4

REPORT INFORMATION
  Report Type: Spontaneous
  Country: US (occurrence: US)
  Receive Date: 20131008
  Receipt Date: 20131008
  Transmission Date: 20140711
  Serious: Yes (Other)
  Sender: FDA-Public Use
  Company Number: US-SUN PHARMACEUTICAL INDUSTRIES LTD-2013SUN04793

PATIENT
  Age: 56 Year
  Sex: Female

DRUGS (3)
  1. ANASTRAZOLE TABLETS 1MG [Suspect]
     Indication: BREAST CANCER
     Dosage: UNK
     Route: 065
  2. CARBOPLATIN [Suspect]
     Indication: PRODUCT USED FOR UNKNOWN INDICATION
     Route: 065
  3. PACLITAXEL [Concomitant]
     Route: 065

REACTIONS (1)
  - Papilloedema [Recovering/Resolving]
